FAERS Safety Report 7627119-6 (Version None)
Quarter: 2011Q3

REPORT INFORMATION
  Report Type: 
  Country: None (occurrence: None)
  Receive Date: 20110721
  Receipt Date: 20110712
  Transmission Date: 20111222
  Serious: Yes (Hospitalization)
  Sender: FDA-Public Use
  Company Number: BR-ASTRAZENECA-2011SE41931

PATIENT
  Age: 82 Year
  Sex: Male

DRUGS (4)
  1. LECTRUM [Concomitant]
     Indication: PROSTATE CANCER
     Route: 048
     Dates: start: 20060101
  2. SEROQUEL [Suspect]
     Indication: DEMENTIA ALZHEIMER'S TYPE
     Route: 048
     Dates: start: 20080101
  3. ANDROCUR [Suspect]
     Indication: PROSTATE CANCER
     Route: 048
     Dates: end: 20100101
  4. SEROQUEL [Suspect]
     Route: 048

REACTIONS (4)
  - PULMONARY THROMBOSIS [None]
  - THROMBOSIS [None]
  - AGGRESSION [None]
  - OFF LABEL USE [None]
